FAERS Safety Report 23268040 (Version 2)
Quarter: 2023Q4

REPORT INFORMATION
  Report Type: Spontaneous
  Country: CN (occurrence: CN)
  Receive Date: 20231206
  Receipt Date: 20231228
  Transmission Date: 20240110
  Serious: Yes (Hospitalization)
  Sender: FDA-Public Use
  Company Number: CN-CMP PHARMA-2023CMP00076

PATIENT
  Age: 18 Year
  Sex: Female

DRUGS (2)
  1. TRIAMCINOLONE [Suspect]
     Active Substance: TRIAMCINOLONE
     Indication: Keloid scar
     Dosage: 0.2ML OF MIXTURE OF TRIAMCINOLONE (1ML: 40MG) AND CONTAMINANT LIDOCAINE (5ML: 0.1G) WITH RATIO OF 1:
     Dates: start: 20220614, end: 20220614
  2. LIDOCAINE [Concomitant]
     Active Substance: LIDOCAINE
     Indication: Keloid scar
     Dosage: 0.2ML OF MIXTURE OF TRIAMCINOLONE (1ML: 40MG) AND LIDOCAINE (5ML: 0.1G) WITH RATIO OF 1:1.
     Dates: start: 20220614, end: 20220614

REACTIONS (2)
  - Deafness neurosensory [Not Recovered/Not Resolved]
  - Embolism [Unknown]

NARRATIVE: CASE EVENT DATE: 20220614
